FAERS Safety Report 15838476 (Version 1)
Quarter: 2019Q1

REPORT INFORMATION
  Report Type: Spontaneous
  Country: GB (occurrence: GB)
  Receive Date: 20190117
  Receipt Date: 20190117
  Transmission Date: 20190417
  Serious: Yes (Death)
  Sender: FDA-Public Use
  Company Number: PHHY2019GB007717

PATIENT
  Age: 60 Year
  Sex: Male

DRUGS (2)
  1. METHYLPREDNISOLONE. [Suspect]
     Active Substance: METHYLPREDNISOLONE
     Indication: TEMPORAL ARTERITIS
     Dosage: UNK
     Route: 042
     Dates: start: 20160617
  2. CYCLOPHOSPHAMIDE. [Suspect]
     Active Substance: CYCLOPHOSPHAMIDE
     Indication: TEMPORAL ARTERITIS
     Dosage: UNK
     Route: 042
     Dates: start: 20160620

REACTIONS (5)
  - Quadriplegia [Fatal]
  - Cerebral infarction [Fatal]
  - Product use in unapproved indication [Unknown]
  - Condition aggravated [Fatal]
  - Encephalopathy [Fatal]

NARRATIVE: CASE EVENT DATE: 20160620
